FAERS Safety Report 4868838-4 (Version None)
Quarter: 2005Q4

REPORT INFORMATION
  Report Type: 
  Country: None (occurrence: None)
  Receive Date: 20051223
  Receipt Date: 20051213
  Transmission Date: 20060501
  Serious: Yes (Disabling)
  Sender: FDA-Public Use
  Company Number: 2005165169

PATIENT
  Age: 56 Year
  Sex: Female
  Weight: 52 kg

DRUGS (4)
  1. TRESLEEN (SERTRALINE) [Suspect]
     Indication: DEPRESSION
     Dosage: 25 MG (50 MG, 1 IN 1 D), ORAL
     Route: 048
     Dates: start: 20040901, end: 20051201
  2. DEANXIT (FLUPENTIXOL, MELITRACEN) [Suspect]
     Indication: DEPRESSION
     Dosage: 0.5MG/10MG (1 IN 1 D), ORAL
     Route: 048
     Dates: start: 20000301, end: 20010101
  3. COSAAR (LOSARTAN POTASSIUM) [Concomitant]
  4. VITAMIN D [Concomitant]

REACTIONS (1)
  - TRISMUS [None]
